FAERS Safety Report 16132131 (Version 7)
Quarter: 2020Q4

REPORT INFORMATION
  Report Type: Report from Study
  Country: US (occurrence: US)
  Receive Date: 20190329
  Receipt Date: 20201103
  Transmission Date: 20210113
  Serious: Yes (Death, Life-Threatening, Other)
  Sender: FDA-Public Use
  Company Number: PHHY2019US070224

PATIENT
  Age: 7 Year
  Sex: Male

DRUGS (4)
  1. FLUDARABINE [Concomitant]
     Active Substance: FLUDARABINE PHOSPHATE
     Indication: CHEMOTHERAPY
     Dosage: UNK
     Route: 065
  2. KYMRIAH [Suspect]
     Active Substance: TISAGENLECLEUCEL
     Dosage: UNK UNK, ONCE/SINGLE
     Route: 041
     Dates: start: 20190211
  3. CYCLOPHOSPHAMIDE. [Concomitant]
     Active Substance: CYCLOPHOSPHAMIDE
     Indication: CHEMOTHERAPY
     Dosage: UNK
     Route: 065
  4. KYMRIAH [Suspect]
     Active Substance: TISAGENLECLEUCEL
     Indication: B-CELL TYPE ACUTE LEUKAEMIA
     Dosage: UNK UNK, ONCE/SINGLE
     Route: 041
     Dates: start: 20180815

REACTIONS (29)
  - Paraparesis [Unknown]
  - Gastroenteritis norovirus [Unknown]
  - Hemiparesis [Unknown]
  - Cytokine release syndrome [Recovered/Resolved]
  - Depressed level of consciousness [Unknown]
  - Hypotension [Unknown]
  - Neutropenia [Unknown]
  - Pyrexia [Unknown]
  - Motor dysfunction [Unknown]
  - Adenovirus infection [Unknown]
  - Staphylococcal infection [Unknown]
  - Lymphocyte count decreased [Unknown]
  - Haematocrit decreased [Unknown]
  - Clostridium difficile colitis [Unknown]
  - Fusobacterium infection [Unknown]
  - Thrombocytopenia [Recovered/Resolved]
  - Hypoxia [Unknown]
  - B-cell type acute leukaemia [Fatal]
  - Malignant neoplasm progression [Fatal]
  - Cytopenia [Unknown]
  - Treatment failure [Unknown]
  - Hypogammaglobulinaemia [Recovered/Resolved]
  - White blood cell count decreased [Unknown]
  - Viral sinusitis [Unknown]
  - Haemoglobin decreased [Unknown]
  - Off label use [Unknown]
  - Neurotoxicity [Recovered/Resolved]
  - Hallucination [Unknown]
  - Streptococcus test positive [Unknown]
